FAERS Safety Report 19959936 (Version 1)
Quarter: 2021Q4

REPORT INFORMATION
  Report Type: Spontaneous
  Country: US (occurrence: US)
  Receive Date: 20211015
  Receipt Date: 20211015
  Transmission Date: 20220303
  Serious: Yes (Other)
  Sender: FDA-Public Use
  Company Number: None

PATIENT
  Age: 71 Year
  Sex: Female

DRUGS (1)
  1. MYFORTIC [Suspect]
     Active Substance: MYCOPHENOLATE SODIUM
     Indication: Liver transplant
     Route: 048
     Dates: start: 20190923, end: 20211004

REACTIONS (2)
  - Squamous cell carcinoma of skin [None]
  - Diarrhoea [None]

NARRATIVE: CASE EVENT DATE: 20211004
